FAERS Safety Report 7587567-X (Version None)
Quarter: 2011Q3

REPORT INFORMATION
  Report Type: 
  Country: None (occurrence: None)
  Receive Date: 20110704
  Receipt Date: 20110620
  Transmission Date: 20111222
  Serious: Yes (Hospitalization, Other)
  Sender: FDA-Public Use
  Company Number: PHHY2011CA53325

PATIENT
  Sex: Female

DRUGS (6)
  1. ZOLEDRONIC ACID [Suspect]
     Indication: OSTEOPOROSIS
     Route: 042
     Dates: start: 20100610
  2. MICARDIS HCT [Concomitant]
  3. OXYBUTYNIN [Concomitant]
  4. METFORMIN HCL [Concomitant]
     Dosage: 850 MG, TID
  5. CRESTOR [Concomitant]
     Dosage: 40 MG,
  6. SERC [Concomitant]
     Dosage: 16 MG, TID
     Dates: start: 20110620

REACTIONS (10)
  - RENAL FAILURE [None]
  - BLOOD CREATININE INCREASED [None]
  - CONFUSIONAL STATE [None]
  - MEMORY IMPAIRMENT [None]
  - LABYRINTHITIS [None]
  - VOMITING [None]
  - RENAL IMPAIRMENT [None]
  - DEHYDRATION [None]
  - HYPERTENSION [None]
  - NAUSEA [None]
